FAERS Safety Report 23022111 (Version 1)
Quarter: 2023Q4

REPORT INFORMATION
  Report Type: Spontaneous
  Country: US (occurrence: None)
  Receive Date: 20231003
  Receipt Date: 20231003
  Transmission Date: 20240110
  Serious: No
  Sender: FDA-Public Use
  Company Number: None

PATIENT
  Age: 64 Year
  Sex: Male
  Weight: 73.48 kg

DRUGS (2)
  1. TREMFYA [Suspect]
     Active Substance: GUSELKUMAB
     Indication: Psoriasis
     Dosage: OTHER FREQUENCY : WEEK 0 AND WEEK 4;?
     Route: 058
     Dates: start: 202207
  2. TREMFYA [Suspect]
     Active Substance: GUSELKUMAB
     Indication: Dermatitis

REACTIONS (2)
  - Postoperative wound infection [None]
  - Back pain [None]
